FAERS Safety Report 20007670 (Version 2)
Quarter: 2021Q4

REPORT INFORMATION
  Report Type: Spontaneous
  Country: CZ (occurrence: CZ)
  Receive Date: 20211028
  Receipt Date: 20211124
  Transmission Date: 20220303
  Serious: Yes (Death, Other)
  Sender: FDA-Public Use
  Company Number: CZ-NOVARTISPH-NVSC2021CZ246078

PATIENT
  Age: 72 Year

DRUGS (1)
  1. KYMRIAH [Suspect]
     Active Substance: TISAGENLECLEUCEL
     Indication: Diffuse large B-cell lymphoma
     Dosage: UNK
     Route: 041
     Dates: start: 20200804

REACTIONS (7)
  - Influenza [Fatal]
  - Respiratory failure [Fatal]
  - Cytokine release syndrome [Recovered/Resolved]
  - Blood fibrinogen decreased [Unknown]
  - Pyrexia [Recovered/Resolved]
  - Portal vein thrombosis [Unknown]
  - Neutropenia [Unknown]

NARRATIVE: CASE EVENT DATE: 20200807
